FAERS Safety Report 5652442-4 (Version None)
Quarter: 2008Q1

REPORT INFORMATION
  Report Type: 
  Country: None (occurrence: None)
  Receive Date: 20080306
  Receipt Date: 20080226
  Transmission Date: 20080703
  Serious: No
  Sender: FDA-Public Use
  Company Number: US-BAYER-200815095NA

PATIENT
  Age: 39 Year
  Sex: Female
  Weight: 74 kg

DRUGS (4)
  1. MIRENA [Suspect]
     Indication: ENDOMETRIOSIS
     Route: 015
     Dates: start: 20080225
  2. MUSCLE RELAXERS NOS [Concomitant]
     Indication: PAIN
  3. PAIN PILLS [Concomitant]
     Indication: PAIN
     Route: 048
  4. ANTIBIOTICS NOS [Concomitant]
     Indication: EXPOSURE TO COMMUNICABLE DISEASE

REACTIONS (2)
  - PROCEDURAL PAIN [None]
  - VAGINAL HAEMORRHAGE [None]
